FAERS Safety Report 7982249-4 (Version None)
Quarter: 2011Q4

REPORT INFORMATION
  Report Type: 
  Country: None (occurrence: None)
  Receive Date: 20111215
  Receipt Date: 20111215
  Transmission Date: 20120403
  Serious: Yes (Hospitalization)
  Sender: FDA-Public Use
  Company Number: None

PATIENT
  Sex: Female
  Weight: 45.359 kg

DRUGS (1)
  1. PRADAXA [Suspect]

REACTIONS (1)
  - HAEMORRHAGIC STROKE [None]
